FAERS Safety Report 5449769-8 (Version None)
Quarter: 2007Q3

REPORT INFORMATION
  Report Type: 
  Country: None (occurrence: None)
  Receive Date: 20070910
  Receipt Date: 20070910
  Transmission Date: 20080115
  Serious: Yes (Hospitalization)
  Sender: FDA-Public Use
  Company Number: None

PATIENT
  Sex: Male
  Weight: 69.6 kg

DRUGS (8)
  1. IRINOTECAN HCL [Suspect]
     Indication: GLIOBLASTOMA MULTIFORME
     Dosage: 125MG/M2 DAY 1, 8, 22, 29 IV
     Route: 042
     Dates: start: 20070628
  2. IRINOTECAN HCL [Suspect]
     Indication: GLIOBLASTOMA MULTIFORME
     Dosage: 125MG/M2 DAY 1, 8, 22, 29 IV
     Route: 042
     Dates: start: 20070705
  3. TEMODAR [Suspect]
     Indication: GLIOBLASTOMA MULTIFORME
     Dosage: 200MG/M2 DAYS 1-5 PO
     Route: 048
     Dates: start: 20070628, end: 20070702
  4. VERAPAMIL [Concomitant]
  5. ASPIRIN [Concomitant]
  6. DEXAMETHASONE 0.5MG TAB [Concomitant]
  7. DEPAKOTE [Concomitant]
  8. KLONOPIN [Concomitant]

REACTIONS (11)
  - BAND NEUTROPHIL COUNT INCREASED [None]
  - COLITIS [None]
  - CONSTIPATION [None]
  - FEBRILE NEUTROPENIA [None]
  - GASTROINTESTINAL DISORDER [None]
  - HAEMOGLOBIN DECREASED [None]
  - HYPOTENSION [None]
  - PULMONARY EMBOLISM [None]
  - SEPSIS [None]
  - TACHYCARDIA [None]
  - THROMBOSIS [None]
